FAERS Safety Report 5527509-1 (Version None)
Quarter: 2007Q4

REPORT INFORMATION
  Report Type: 
  Country: None (occurrence: None)
  Receive Date: 20071128
  Receipt Date: 20071115
  Transmission Date: 20080405
  Serious: Yes (Other)
  Sender: FDA-Public Use
  Company Number: AU-ELI_LILLY_AND_COMPANY-AU200711003339

PATIENT

DRUGS (1)
  1. ZYPREXA [Suspect]
     Dosage: 5 MG, UNKNOWN
     Route: 064

REACTIONS (2)
  - CEREBRAL CYST [None]
  - DRUG EXPOSURE DURING PREGNANCY [None]
